FAERS Safety Report 8485055 (Version 7)
Quarter: 2014Q2

REPORT INFORMATION
  Report Type: Spontaneous
  Country: US (occurrence: CA)
  Receive Date: 20120323
  Receipt Date: 20140519
  Transmission Date: 20141212
  Serious: Yes (Death, Life-Threatening, Hospitalization, Other)
  Sender: FDA-Public Use
  Company Number: US-009507513-2012SP014867

PATIENT
  Age: 59 Year
  Sex: Male
  Weight: 85 kg

DRUGS (10)
  1. VICTRELIS [Suspect]
     Indication: HEPATITIS C
     Dosage: 800 MG, Q8H
     Route: 048
     Dates: start: 20111205, end: 20120313
  2. RIBAVIRIN [Suspect]
     Indication: HEPATITIS C
     Dosage: 1000 MG, QD
     Route: 048
     Dates: start: 20111107, end: 20120313
  3. PEGASYS [Suspect]
     Indication: HEPATITIS C
     Dosage: 180 ?G, QW
     Route: 058
     Dates: start: 20111107, end: 20120313
  4. EPREX [Concomitant]
     Indication: ANAEMIA
     Dosage: 4000 UNITES
     Route: 042
     Dates: start: 20120223
  5. SPIRONOLACTONE [Concomitant]
     Route: 065
  6. NADOLOL [Concomitant]
     Route: 065
  7. GLYBURIDE [Concomitant]
     Indication: DIABETES MELLITUS
     Dosage: 2.5 MG, QD
     Route: 048
  8. LASIX (FUROSEMIDE) [Concomitant]
     Indication: OEDEMA PERIPHERAL
     Dosage: 20 MG, QD
     Route: 048
     Dates: start: 20120215
  9. METFORMIN HYDROCHLORIDE [Concomitant]
     Route: 065
  10. DIAZEPAM [Concomitant]
     Route: 065

REACTIONS (10)
  - Septic shock [Fatal]
  - Multi-organ failure [Fatal]
  - Renal failure [Fatal]
  - Loss of consciousness [Fatal]
  - Ascites [Fatal]
  - Confusional state [Fatal]
  - Ketoacidosis [Fatal]
  - Blood glucose increased [Fatal]
  - Anaemia [Fatal]
  - Platelet count decreased [Fatal]
